FAERS Safety Report 4285929-X (Version None)
Quarter: 2004Q1

REPORT INFORMATION
  Report Type: 
  Country: None (occurrence: None)
  Receive Date: 20040205
  Receipt Date: 20040126
  Transmission Date: 20041129
  Serious: Yes (Other)
  Sender: FDA-Public Use
  Company Number: IE-GLAXOSMITHKLINE-B0321056A

PATIENT
  Age: 2 Year
  Sex: Male

DRUGS (2)
  1. AUGMENTIN '125' [Suspect]
     Indication: UPPER RESPIRATORY TRACT INFECTION
     Dosage: 15ML PER DAY
     Route: 048
     Dates: start: 20040109, end: 20040112
  2. LACTULOSE [Concomitant]

REACTIONS (1)
  - DERMATITIS BULLOUS [None]
